FAERS Safety Report 18967927 (Version 1)
Quarter: 2021Q1

REPORT INFORMATION
  Report Type: Spontaneous
  Country: US (occurrence: US)
  Receive Date: 20210303
  Receipt Date: 20210303
  Transmission Date: 20210420
  Serious: Yes (Death)
  Sender: FDA-Public Use
  Company Number: None

PATIENT
  Age: 70 Year
  Sex: Female

DRUGS (22)
  1. SPIRONOLACTONE. [Suspect]
     Active Substance: SPIRONOLACTONE
  2. MVI? MINERALS [Concomitant]
  3. ALBUTEROL HFA [Concomitant]
     Active Substance: ALBUTEROL SULFATE
  4. CYANOCOBALAMNIN [Concomitant]
  5. GABRAPENTIN [Concomitant]
  6. ALVESCO HFA [Concomitant]
  7. TYLENOL [Concomitant]
     Active Substance: ACETAMINOPHEN
  8. TRAZODONE [Concomitant]
     Active Substance: TRAZODONE HYDROCHLORIDE
  9. LOPERAMIDE [Concomitant]
     Active Substance: LOPERAMIDE
  10. TADALAFIL 20MG TAB 60/BO (DR.REDDY) [Suspect]
     Active Substance: TADALAFIL
     Indication: PULMONARY HYPERTENSION
     Route: 048
     Dates: start: 20190826, end: 20210301
  11. TADALAFIL. [Suspect]
     Active Substance: TADALAFIL
  12. TORSEMIDE. [Suspect]
     Active Substance: TORSEMIDE
  13. AMIODARONE [Suspect]
     Active Substance: AMIODARONE
  14. CALCITRATE?VITAMIN D [Concomitant]
  15. LIDOCAINE PATCH [Concomitant]
     Active Substance: LIDOCAINE
  16. FOSAMAX [Concomitant]
     Active Substance: ALENDRONATE SODIUM
  17. UPTRAVI [Suspect]
     Active Substance: SELEXIPAG
  18. POTASSIUM CHLORIDE. [Suspect]
     Active Substance: POTASSIUM CHLORIDE
  19. METOCLOPRAMIDE. [Suspect]
     Active Substance: METOCLOPRAMIDE
  20. FERROUS SULFATE. [Concomitant]
     Active Substance: FERROUS SULFATE
  21. PANTOPRAZOLE [Suspect]
     Active Substance: PANTOPRAZOLE
  22. HYDROCHLOROTHIAZIDE. [Concomitant]
     Active Substance: HYDROCHLOROTHIAZIDE

REACTIONS (5)
  - Gastrointestinal disorder [None]
  - Septic shock [None]
  - Cardiac failure [None]
  - Tachycardia [None]
  - Palliative care [None]

NARRATIVE: CASE EVENT DATE: 20210227
